FAERS Safety Report 6305640-0 (Version None)
Quarter: 2009Q3

REPORT INFORMATION
  Report Type: 
  Country: None (occurrence: None)
  Receive Date: 20090806
  Receipt Date: 20090723
  Transmission Date: 20100115
  Serious: Yes (Hospitalization)
  Sender: FDA-Public Use
  Company Number: 8049637

PATIENT
  Age: 25 Year
  Sex: Male
  Weight: 51 kg

DRUGS (4)
  1. PREDNISOLONE [Suspect]
     Indication: STILL'S DISEASE ADULT ONSET
     Dosage: 55 MG /D 1 WEEK 1 DAY 50 MG /D 4 DAYS 60 MG /D
  2. PREDNISOLONE [Suspect]
     Indication: STILL'S DISEASE ADULT ONSET
     Dosage: 55 MG /D 1 WEEK 1 DAY 50 MG /D 4 DAYS 60 MG /D
  3. METHYLPREDNISOLONE [Suspect]
     Indication: STILL'S DISEASE ADULT ONSET
     Dosage: 1 G /D
  4. CYCLOSPORINE [Concomitant]

REACTIONS (2)
  - EXTRANODAL NK/T-CELL LYMPHOMA, NASAL TYPE [None]
  - THROMBOCYTOPENIA [None]
